FAERS Safety Report 8357292-6 (Version None)
Quarter: 2012Q2

REPORT INFORMATION
  Report Type: 
  Country: None (occurrence: None)
  Receive Date: 20120514
  Receipt Date: 20120507
  Transmission Date: 20120825
  Serious: No
  Sender: FDA-Public Use
  Company Number: PHHY2012MX026075

PATIENT
  Sex: Female

DRUGS (11)
  1. ALPRAZOLAM [Concomitant]
     Indication: DEPRESSION
  2. SNELVIT [Concomitant]
     Indication: RETINAL DISORDER
     Dosage: 1 DF, DAILY
     Dates: start: 20120101
  3. LUTEIN [Concomitant]
     Indication: EYE DISORDER
     Dosage: UNK UKN, UNK
  4. EXFORGE HCT [Suspect]
     Indication: HYPERTENSION
     Dosage: 0.5 TABLET (160/5/12.5 MG) DAILY
     Dates: start: 20111228
  5. ALPRAZOLAM [Concomitant]
     Indication: INSOMNIA
     Dosage: 1 CAPSULE DAILY
     Dates: start: 20120315
  6. ZEACANTINA [Concomitant]
     Indication: EYE DISORDER
     Dosage: 1 DF, DAILY
     Dates: start: 20111201
  7. TIBOLONE [Concomitant]
     Indication: INTRAOCULAR PRESSURE TEST ABNORMAL
     Dosage: 1 TABLET DAILY
     Dates: start: 20110301
  8. XALATAN [Concomitant]
     Indication: INTRAOCULAR PRESSURE TEST ABNORMAL
     Dosage: 1 DROP IN EACH EYE FOR 3 WEEKS
     Dates: start: 20120303
  9. LIVIAL [Concomitant]
     Indication: PREMATURE MENOPAUSE
     Dosage: 1 DF, DAILY
  10. TRIMEBUTINE [Concomitant]
     Indication: COLITIS
     Dosage: 1 TABLET DAILY FOR 10 DAYS
     Dates: start: 20120312
  11. DAFLON (DIOSMIN/HESPERIDIN) [Concomitant]
     Indication: CARDIOVASCULAR DISORDER
     Dosage: 1 DF, UNK
     Dates: start: 20120228

REACTIONS (9)
  - FATIGUE [None]
  - WRONG TECHNIQUE IN DRUG USAGE PROCESS [None]
  - INSOMNIA [None]
  - SOMNOLENCE [None]
  - OROPHARYNGEAL PAIN [None]
  - TINEA PEDIS [None]
  - POOR QUALITY SLEEP [None]
  - HYPERTENSION [None]
  - EATING DISORDER [None]
